FAERS Safety Report 19840939 (Version 1)
Quarter: 2021Q3

REPORT INFORMATION
  Report Type: Spontaneous
  Country: DE (occurrence: DE)
  Receive Date: 20210916
  Receipt Date: 20210916
  Transmission Date: 20211014
  Serious: Yes (Hospitalization)
  Sender: FDA-Public Use
  Company Number: DE-TEVA-2021-DE-1951556

PATIENT
  Age: 56 Year
  Sex: Male

DRUGS (2)
  1. ENALAPRIL [Suspect]
     Active Substance: ENALAPRIL
     Dosage: 20 MILLIGRAM DAILY; 0?0?1?0
     Route: 048
  2. HYDROCHLOROTHIAZID [Concomitant]
     Active Substance: HYDROCHLOROTHIAZIDE
     Dosage: 12.5 MILLIGRAM DAILY; 0?0?1?0
     Route: 048

REACTIONS (4)
  - Angina pectoris [Unknown]
  - Nausea [Unknown]
  - Ventricular extrasystoles [Unknown]
  - Dizziness [Unknown]
